FAERS Safety Report 9581929 (Version 3)
Quarter: 2014Q2

REPORT INFORMATION
  Report Type: Report from Study
  Country: CA (occurrence: CA)
  Receive Date: 20131002
  Receipt Date: 20140612
  Transmission Date: 20141212
  Serious: Yes (Hospitalization, Disabling, Other)
  Sender: FDA-Public Use
  Company Number: CA-ABBVIE-13P-028-1150369-00

PATIENT
  Sex: Female

DRUGS (2)
  1. HUMIRA [Suspect]
     Indication: CROHN^S DISEASE
     Route: 058
     Dates: start: 20110415, end: 20130905
  2. HUMIRA [Suspect]
     Route: 058
     Dates: start: 201310

REACTIONS (5)
  - Impaired work ability [Unknown]
  - Fistula [Unknown]
  - Intestinal perforation [Unknown]
  - Condition aggravated [Not Recovered/Not Resolved]
  - Infection [Unknown]
